FAERS Safety Report 10173079 (Version 1)
Quarter: 2014Q2

REPORT INFORMATION
  Report Type: Spontaneous
  Country: US (occurrence: US)
  Receive Date: 20140515
  Receipt Date: 20140515
  Transmission Date: 20141212
  Serious: No
  Sender: FDA-Public Use
  Company Number: US-009507513-1405USA003206

PATIENT
  Age: 8 Year
  Sex: Female

DRUGS (4)
  1. MIRALAX [Suspect]
     Indication: CONSTIPATION
     Dosage: 17 G, BID
     Route: 048
  2. MIRALAX [Suspect]
     Dosage: 17 G, BID
     Route: 048
  3. EX-LAX (NEW FORMULA) [Concomitant]
     Indication: CONSTIPATION
     Dosage: UNK, UNKNOWN
  4. AMITIZA [Concomitant]
     Indication: CONSTIPATION
     Dosage: UNK, UNKNOWN

REACTIONS (3)
  - Prescribed overdose [Unknown]
  - Off label use [Unknown]
  - Product quality issue [Unknown]
